FAERS Safety Report 9413779 (Version 2)
Quarter: 2013Q3

REPORT INFORMATION
  Report Type: Spontaneous
  Country: JP (occurrence: JP)
  Receive Date: 20130723
  Receipt Date: 20130919
  Transmission Date: 20140515
  Serious: Yes (Death, Other)
  Sender: FDA-Public Use
  Company Number: JP-PFIZER INC-2013209832

PATIENT
  Age: 78 Year
  Sex: Male
  Weight: 70 kg

DRUGS (3)
  1. METHYLPREDNISOLONE SODIUM SUCCINATE [Suspect]
     Indication: INTERSTITIAL LUNG DISEASE
     Dosage: 100 MG FOR 3 DAYS
  2. CARBOPLATIN [Concomitant]
     Indication: LUNG NEOPLASM MALIGNANT
     Dosage: UNK
     Dates: start: 200803
  3. PACLITAXEL [Concomitant]
     Indication: LUNG NEOPLASM MALIGNANT
     Dosage: UNK
     Dates: start: 200803

REACTIONS (3)
  - Pseudomembranous colitis [Fatal]
  - Diverticular perforation [Fatal]
  - Peritonitis [Fatal]
